FAERS Safety Report 5484820-0 (Version None)
Quarter: 2007Q4

REPORT INFORMATION
  Report Type: 
  Country: None (occurrence: None)
  Receive Date: 20071012
  Receipt Date: 20070930
  Transmission Date: 20080405
  Serious: Yes (Other)
  Sender: FDA-Public Use
  Company Number: US-PFIZER INC-2007082663

PATIENT
  Sex: Male
  Weight: 104.8 kg

DRUGS (8)
  1. CHANTIX [Suspect]
     Indication: EX-SMOKER
  2. GLIBENCLAMIDE TABLET [Suspect]
     Indication: DIABETES MELLITUS INADEQUATE CONTROL
  3. LOTENSIN [Suspect]
     Indication: HYPERTENSION
  4. LOTENSIN [Suspect]
  5. NORVASC [Concomitant]
  6. DARVOCET [Concomitant]
  7. SIMVASTATIN [Concomitant]
  8. ACETYLSALICYLIC ACID [Concomitant]

REACTIONS (3)
  - BLOOD GLUCOSE INCREASED [None]
  - RENAL FUNCTION TEST ABNORMAL [None]
  - VISION BLURRED [None]
